FAERS Safety Report 5229637-7 (Version None)
Quarter: 2007Q1

REPORT INFORMATION
  Report Type: 
  Country: None (occurrence: None)
  Receive Date: 20070201
  Receipt Date: 20070119
  Transmission Date: 20070707
  Serious: Yes (Hospitalization)
  Sender: FDA-Public Use
  Company Number: 232707

PATIENT
  Age: 71 Year
  Sex: Male

DRUGS (8)
  1. AVASTIN [Suspect]
     Indication: ADENOCARCINOMA PANCREAS
     Dosage: 10 MG/KG, INTRAVENOUS
     Route: 042
     Dates: start: 20060722, end: 20060830
  2. GEMCITABINE [Suspect]
     Indication: ADENOCARCINOMA PANCREAS
     Dosage: 400 MG/M2, INTRAVENOUS
     Route: 042
     Dates: start: 20060722, end: 20060830
  3. LORTAB [Concomitant]
  4. CREON [Concomitant]
  5. ERYTHROMYCIN [Concomitant]
  6. LOPRESSOR [Concomitant]
  7. MEGACE [Concomitant]
  8. PRILOSEC [Concomitant]

REACTIONS (6)
  - ABSCESS [None]
  - BILE DUCT OBSTRUCTION [None]
  - BILIARY TRACT DISORDER [None]
  - DILATATION INTRAHEPATIC DUCT ACQUIRED [None]
  - POST PROCEDURAL BILE LEAK [None]
  - PROCEDURAL SITE REACTION [None]
